FAERS Safety Report 7863511-2 (Version None)
Quarter: 2011Q4

REPORT INFORMATION
  Report Type: 
  Country: None (occurrence: None)
  Receive Date: 20111027
  Receipt Date: 20101206
  Transmission Date: 20120403
  Serious: No
  Sender: FDA-Public Use
  Company Number: US-AMGEN-USASP2010007818

PATIENT

DRUGS (3)
  1. ENBREL [Suspect]
     Indication: ANKYLOSING SPONDYLITIS
  2. INDOCIN [Concomitant]
  3. NAPROSYN [Concomitant]

REACTIONS (1)
  - AMPHETAMINES POSITIVE [None]
